FAERS Safety Report 17015189 (Version 1)
Quarter: 2019Q4

REPORT INFORMATION
  Report Type: Spontaneous
  Country: US (occurrence: US)
  Receive Date: 20191108
  Receipt Date: 20191108
  Transmission Date: 20200122
  Serious: Yes (Hospitalization)
  Sender: FDA-Public Use
  Company Number: None

PATIENT
  Age: 54 Year
  Sex: Female
  Weight: 116.2 kg

DRUGS (2)
  1. EXENATIDE. [Suspect]
     Active Substance: EXENATIDE
     Indication: GLUCOSE TOLERANCE IMPAIRED
     Dosage: ?          OTHER FREQUENCY:WEEKLY;?
     Route: 058
     Dates: start: 20190930
  2. PIPERACILLIN AND TAZOBACTAM [Concomitant]
     Active Substance: PIPERACILLIN SODIUM\TAZOBACTAM SODIUM
     Dates: start: 20191105, end: 20191106

REACTIONS (12)
  - Pyrexia [None]
  - Infection [None]
  - Post procedural haematoma [None]
  - Diarrhoea [None]
  - Vomiting [None]
  - Tachycardia [None]
  - Asthenia [None]
  - Cytomegalovirus test positive [None]
  - Neutropenia [None]
  - Hyperhidrosis [None]
  - Chills [None]
  - Immunosuppression [None]

NARRATIVE: CASE EVENT DATE: 20191104
